FAERS Safety Report 17548769 (Version 1)
Quarter: 2020Q1

REPORT INFORMATION
  Report Type: Spontaneous
  Country: US (occurrence: US)
  Receive Date: 20200317
  Receipt Date: 20200317
  Transmission Date: 20200409
  Serious: No
  Sender: FDA-Public Use
  Company Number: US-ALLERGAN-1911626US

PATIENT
  Sex: Female

DRUGS (5)
  1. NORCO [Suspect]
     Active Substance: ACETAMINOPHEN\HYDROCODONE BITARTRATE
     Indication: PAIN
     Dosage: UNK
     Route: 065
  2. ZOFRAN [Suspect]
     Active Substance: ONDANSETRON HYDROCHLORIDE
     Indication: NAUSEA
     Dosage: UNK
     Route: 065
  3. RELPAX [Concomitant]
     Active Substance: ELETRIPTAN HYDROBROMIDE
  4. DURICEF [Suspect]
     Active Substance: CEFADROXIL
     Indication: ANTIBIOTIC THERAPY
     Dosage: UNK
     Route: 065
  5. EMGALITY [Concomitant]
     Active Substance: GALCANEZUMAB-GNLM
     Dosage: UNK
     Dates: start: 201812

REACTIONS (2)
  - Butterfly rash [Recovered/Resolved]
  - Migraine [Unknown]
